FAERS Safety Report 7162088-7 (Version None)
Quarter: 2010Q4

REPORT INFORMATION
  Report Type: 
  Country: None (occurrence: None)
  Receive Date: 20101215
  Receipt Date: 20101207
  Transmission Date: 20110411
  Serious: Yes (Other)
  Sender: FDA-Public Use
  Company Number: IT-ABBOTT-10P-083-0662683-00

PATIENT
  Age: 15 Year
  Sex: Male

DRUGS (2)
  1. DEPAKENE [Suspect]
     Indication: EPILEPSY
     Dosage: DAILY DOSE: 200MG
     Route: 048
  2. KEPPRA [Suspect]
     Indication: EPILEPSY
     Dosage: DAILY DOSE: 1GM
     Route: 048

REACTIONS (2)
  - FALL [None]
  - SYNCOPE [None]
